FAERS Safety Report 21789122 (Version 1)
Quarter: 2022Q4

REPORT INFORMATION
  Report Type: Spontaneous
  Country: CN (occurrence: CN)
  Receive Date: 20221228
  Receipt Date: 20221228
  Transmission Date: 20230113
  Serious: Yes (Other)
  Sender: FDA-Public Use
  Company Number: None

PATIENT
  Age: 40 Year
  Sex: Female
  Weight: 59 kg

DRUGS (4)
  1. CYCLOPHOSPHAMIDE [Suspect]
     Active Substance: CYCLOPHOSPHAMIDE
     Indication: Breast cancer female
     Dosage: 0.95 G, QD, DILUTED WITH 100 ML OF 0.9 % SODIUM CHLORIDE (FOURTH CHEMOTHERAPY)
     Route: 041
     Dates: start: 20221123, end: 20221123
  2. SODIUM CHLORIDE [Suspect]
     Active Substance: SODIUM CHLORIDE
     Indication: Medication dilution
     Dosage: 100 ML, QD, USED TO DILUTE 0.95 G CYCLOPHOSPHAMIDE (FOURTH CHEMOTHERAPY)
     Route: 041
     Dates: start: 20221123, end: 20221123
  3. DEXTROSE MONOHYDRATE [Suspect]
     Active Substance: DEXTROSE MONOHYDRATE
     Indication: Medication dilution
     Dosage: 250 ML, QD, USED TO DILUTE 55 MG DOXORUBICIN LIPOSOME (FOURTH CHEMOTHERAPY)
     Route: 041
     Dates: start: 20221123, end: 20221123
  4. DOXORUBICIN HYDROCHLORIDE [Suspect]
     Active Substance: DOXORUBICIN HYDROCHLORIDE
     Indication: Breast cancer female
     Dosage: 55 MG, QD, DILUTED WITH 250 ML OF 5 % GLUCOSE (FOURTH CHEMOTHERAPY)
     Route: 041
     Dates: start: 20221123, end: 20221123

REACTIONS (1)
  - Myelosuppression [Recovering/Resolving]

NARRATIVE: CASE EVENT DATE: 20221202
